FAERS Safety Report 15230671 (Version 1)
Quarter: 2018Q3

REPORT INFORMATION
  Report Type: Spontaneous
  Country: US (occurrence: US)
  Receive Date: 20180802
  Receipt Date: 20180802
  Transmission Date: 20181010
  Serious: No
  Sender: FDA-Public Use
  Company Number: US-SA-2018SA208171

PATIENT
  Sex: Male

DRUGS (2)
  1. ALIROCUMAB PREFILLED PEN [Suspect]
     Active Substance: ALIROCUMAB
     Indication: TYPE IIA HYPERLIPIDAEMIA
     Dosage: UNK, QOW
  2. PRALUENT [Suspect]
     Active Substance: ALIROCUMAB
     Indication: TYPE IIA HYPERLIPIDAEMIA
     Dosage: UNK, QOW

REACTIONS (7)
  - Pain [Unknown]
  - Fatigue [Unknown]
  - Nasal congestion [Unknown]
  - Cough [Unknown]
  - Oropharyngeal pain [Unknown]
  - Pyrexia [Unknown]
  - Productive cough [Unknown]
